FAERS Safety Report 4595494-5 (Version None)
Quarter: 2005Q1

REPORT INFORMATION
  Report Type: 
  Country: None (occurrence: None)
  Receive Date: 20050302
  Receipt Date: 20050204
  Transmission Date: 20050727
  Serious: Yes (Other)
  Sender: FDA-Public Use
  Company Number: JP-JNJFOC-20050206478

PATIENT
  Age: 32 Year
  Sex: Male

DRUGS (15)
  1. REMICADE [Suspect]
     Route: 042
  2. REMICADE [Suspect]
     Route: 042
  3. REMICADE [Suspect]
     Route: 042
  4. REMICADE [Suspect]
     Indication: CROHN'S DISEASE
     Route: 042
  5. AMPHOTERICIN B [Concomitant]
  6. BISMUTH SUBNITRATE [Concomitant]
  7. FERO-GRADUMET [Concomitant]
  8. LACTOMIN [Concomitant]
  9. MESALAMINE [Concomitant]
  10. MOSAPRIDE CITRATE [Concomitant]
  11. OMEPRAZOLE [Concomitant]
  12. POLAPREZINC [Concomitant]
  13. PREDNISOLONE [Concomitant]
  14. RABEPRAZOLE SODIUM [Concomitant]
  15. TANNALBIN [Concomitant]

REACTIONS (1)
  - OESOPHAGEAL CANDIDIASIS [None]
